FAERS Safety Report 22965845 (Version 3)
Quarter: 2025Q2

REPORT INFORMATION
  Report Type: Report from Study
  Country: CA (occurrence: CA)
  Receive Date: 20230921
  Receipt Date: 20250522
  Transmission Date: 20250717
  Serious: Yes (Hospitalization, Other)
  Sender: TAKEDA
  Company Number: CA-TAKEDA-2023TUS089727

PATIENT
  Sex: Female

DRUGS (1)
  1. VEDOLIZUMAB [Suspect]
     Active Substance: VEDOLIZUMAB
     Indication: Colitis ulcerative

REACTIONS (8)
  - Quality of life decreased [Recovering/Resolving]
  - Anal abscess [Recovering/Resolving]
  - Wound [Unknown]
  - Impaired healing [Recovering/Resolving]
  - Rhinorrhoea [Unknown]
  - Urticaria [Recovered/Resolved]
  - Oropharyngeal pain [Unknown]
  - Pyrexia [Unknown]

NARRATIVE: CASE EVENT DATE: 20230301
